FAERS Safety Report 11262113 (Version 2)
Quarter: 2015Q3

REPORT INFORMATION
  Report Type: Spontaneous
  Country: JP (occurrence: JP)
  Receive Date: 20150710
  Receipt Date: 20150810
  Transmission Date: 20151125
  Serious: Yes (Death)
  Sender: FDA-Public Use
  Company Number: JP-ASTRAZENECA-2015SE67439

PATIENT
  Age: 57 Year
  Sex: Male

DRUGS (8)
  1. VANCOMYCIN HYDROCHLORIDE. [Concomitant]
     Active Substance: VANCOMYCIN HYDROCHLORIDE
     Indication: CLOSTRIDIUM DIFFICILE INFECTION
     Route: 041
  2. SULBACTAM SODIUM/AMPICILLIN SODIUM [Concomitant]
     Indication: PNEUMONIA
     Route: 042
  3. METRONIDAZOLE. [Concomitant]
     Active Substance: METRONIDAZOLE
     Indication: CLOSTRIDIUM DIFFICILE INFECTION
     Route: 048
  4. METRONIDAZOLE. [Concomitant]
     Active Substance: METRONIDAZOLE
     Indication: SEPTIC SHOCK
     Route: 041
  5. MEROPEN [Suspect]
     Active Substance: MEROPENEM
     Indication: SEPTIC SHOCK
     Dosage: NON-AZ PRODUCT
     Route: 041
  6. METRONIDAZOLE. [Concomitant]
     Active Substance: METRONIDAZOLE
     Indication: SEPTIC SHOCK
     Route: 048
  7. METRONIDAZOLE. [Concomitant]
     Active Substance: METRONIDAZOLE
     Indication: CLOSTRIDIUM DIFFICILE INFECTION
     Route: 041
  8. MEROPEN [Suspect]
     Active Substance: MEROPENEM
     Indication: PNEUMONIA
     Dosage: NON-AZ PRODUCT
     Route: 041

REACTIONS (6)
  - Clostridium difficile sepsis [Fatal]
  - Septic shock [Fatal]
  - Clostridium test positive [Fatal]
  - Diarrhoea [Fatal]
  - Pseudomembranous colitis [Fatal]
  - Pyrexia [Fatal]
